FAERS Safety Report 16044783 (Version 2)
Quarter: 2019Q1

REPORT INFORMATION
  Report Type: Spontaneous
  Country: PH (occurrence: PH)
  Receive Date: 20190307
  Receipt Date: 20190328
  Transmission Date: 20190418
  Serious: Yes (Life-Threatening, Hospitalization, Other)
  Sender: FDA-Public Use
  Company Number: PH-LUPIN PHARMACEUTICALS INC.-2019-01246

PATIENT
  Age: 60 Year
  Sex: Male

DRUGS (3)
  1. ALTEPLASE. [Interacting]
     Active Substance: ALTEPLASE
     Indication: THROMBOLYSIS
     Dosage: 90 MILLIGRAM/KILOGRAM, DRIP
     Route: 042
  2. LOSARTAN. [Suspect]
     Active Substance: LOSARTAN
     Indication: PRODUCT USED FOR UNKNOWN INDICATION
     Dosage: UNK
     Route: 065
  3. ALTEPLASE. [Interacting]
     Active Substance: ALTEPLASE
     Indication: BRAIN STEM INFARCTION

REACTIONS (2)
  - Angioedema [Recovered/Resolved]
  - Drug interaction [Unknown]
